FAERS Safety Report 23296969 (Version 2)
Quarter: 2024Q1

REPORT INFORMATION
  Report Type: Report from Study
  Country: US (occurrence: US)
  Receive Date: 20231214
  Receipt Date: 20240108
  Transmission Date: 20240410
  Serious: No
  Sender: FDA-Public Use
  Company Number: US-AGIOS-2311US03550

PATIENT
  Sex: Female

DRUGS (8)
  1. MITAPIVAT [Suspect]
     Active Substance: MITAPIVAT
     Indication: Pyruvate kinase deficiency anaemia
     Dosage: 50 MILLIGRAM, BID
     Route: 065
     Dates: start: 20230803
  2. APPLE CIDER [Concomitant]
     Indication: Product used for unknown indication
     Dosage: 2 UNK
  3. VITAMIN C GUMMY BEARS [Concomitant]
     Indication: Product used for unknown indication
     Dosage: 250 MILLIGRAM, 2 TAB DAILY
     Route: 065
  4. OMEGA 3,6,9 [Concomitant]
     Indication: Product used for unknown indication
     Dosage: 3 TABLETS DAILY
  5. VITAMIN B3 [Concomitant]
     Active Substance: NIACIN
     Indication: Product used for unknown indication
     Dosage: 2000 INTERNATIONAL UNIT, 2 TABLETS DAILY
  6. MULTIVITAMIN GUMMY BEARS [Concomitant]
     Indication: Product used for unknown indication
     Dosage: 2 DAILY
  7. ALEGRA [Concomitant]
     Indication: Product used for unknown indication
     Dosage: 1 TAB AT NIGHT
  8. JUNEL FE 1/20 [Concomitant]
     Active Substance: ETHINYL ESTRADIOL\NORETHINDRONE ACETATE
     Indication: Contraception
     Dosage: DAILY

REACTIONS (3)
  - Influenza [Recovering/Resolving]
  - Haemoglobin abnormal [Unknown]
  - COVID-19 [Unknown]
